FAERS Safety Report 11014128 (Version 2)
Quarter: 2015Q2

REPORT INFORMATION
  Report Type: Spontaneous
  Country: US (occurrence: US)
  Receive Date: 20150412
  Receipt Date: 20150525
  Transmission Date: 20150821
  Serious: No
  Sender: FDA-Public Use
  Company Number: US-JNJFOC-20140311738

PATIENT
  Sex: Female

DRUGS (2)
  1. OLYSIO [Suspect]
     Active Substance: SIMEPREVIR
     Indication: HEPATITIS
     Route: 048
     Dates: end: 20140327
  2. FENTANYL. [Concomitant]
     Active Substance: FENTANYL
     Indication: COMPLEX REGIONAL PAIN SYNDROME
     Dates: start: 2004

REACTIONS (2)
  - Accidental exposure to product [Not Recovered/Not Resolved]
  - Product physical issue [Unknown]
